FAERS Safety Report 12375318 (Version 4)
Quarter: 2016Q3

REPORT INFORMATION
  Report Type: Spontaneous
  Country: GB (occurrence: GB)
  Receive Date: 20160517
  Receipt Date: 20160706
  Transmission Date: 20161109
  Serious: Yes (Hospitalization)
  Sender: FDA-Public Use
  Company Number: GB-PFIZER INC-2016135570

PATIENT
  Age: 47 Year
  Sex: Female

DRUGS (8)
  1. AVASTIN [Suspect]
     Active Substance: BEVACIZUMAB
     Dosage: 350 MG, UNK
     Route: 042
  2. 5-FLUOROURACIL /00098801/ [Suspect]
     Active Substance: FLUOROURACIL
     Dosage: UNK
     Route: 065
  3. EMEND [Suspect]
     Active Substance: APREPITANT
     Dosage: 125 MG, UNK
     Route: 048
  4. CALCIUM [Suspect]
     Active Substance: CALCIUM
     Dosage: UNK
  5. ATROPINE. [Suspect]
     Active Substance: ATROPINE
     Dosage: 250 UG, UNK
     Route: 058
  6. ONDANSETRON [Suspect]
     Active Substance: ONDANSETRON
     Dosage: 8 MG, UNK
     Route: 042
  7. DEXAMETHASONE. [Suspect]
     Active Substance: DEXAMETHASONE
     Dosage: 6.6 MG, UNK
     Route: 042
  8. IRINOTECAN HCL [Suspect]
     Active Substance: IRINOTECAN HYDROCHLORIDE
     Indication: PRODUCT USED FOR UNKNOWN INDICATION
     Dosage: UNK
     Route: 042

REACTIONS (2)
  - Proctalgia [Unknown]
  - Diarrhoea [Unknown]
